FAERS Safety Report 24945377 (Version 1)
Quarter: 2025Q1

REPORT INFORMATION
  Report Type: Spontaneous
  Country: US (occurrence: US)
  Receive Date: 20250209
  Receipt Date: 20250209
  Transmission Date: 20250408
  Serious: No
  Sender: TARO
  Company Number: US-TARO PHARMACEUTICALS USA INC.-2025TAR00072

PATIENT

DRUGS (2)
  1. ADAPALENE [Suspect]
     Active Substance: ADAPALENE
     Indication: Acne
     Dosage: UNK, 2X/DAY
     Route: 065
     Dates: start: 20241110
  2. Equate Brain Health Vitamin [Concomitant]
     Indication: Product used for unknown indication
     Route: 065

REACTIONS (2)
  - Dry skin [Unknown]
  - Acne [Unknown]

NARRATIVE: CASE EVENT DATE: 20241101
